FAERS Safety Report 7952893-9 (Version None)
Quarter: 2011Q4

REPORT INFORMATION
  Report Type: 
  Country: None (occurrence: None)
  Receive Date: 20111201
  Receipt Date: 20111122
  Transmission Date: 20120403
  Serious: Yes (Hospitalization, Other)
  Sender: FDA-Public Use
  Company Number: US-ASTRAZENECA-2011SE71078

PATIENT
  Age: 76 Year
  Sex: Male
  Weight: 97.5 kg

DRUGS (7)
  1. LOSARTAN POTASSIUM [Concomitant]
  2. ZOLADEX [Suspect]
     Indication: PROSTATE CANCER
     Route: 058
     Dates: start: 20110601
  3. CRESTOR [Suspect]
     Route: 048
  4. CARVEDILOL [Concomitant]
  5. CASODEX [Suspect]
     Indication: PROSTATE CANCER
     Route: 048
     Dates: end: 20110101
  6. COUMADIN [Concomitant]
  7. FUROSEMIDE [Concomitant]

REACTIONS (13)
  - SINUS DISORDER [None]
  - HOT FLUSH [None]
  - BRONCHITIS CHRONIC [None]
  - PENIS DISORDER [None]
  - HYPERCHOLESTEROLAEMIA [None]
  - ERECTILE DYSFUNCTION [None]
  - MALE SEXUAL DYSFUNCTION [None]
  - CARDIAC DISORDER [None]
  - PARKINSON'S DISEASE [None]
  - MICTURITION URGENCY [None]
  - LOWER URINARY TRACT SYMPTOMS [None]
  - BACK PAIN [None]
  - LIBIDO DECREASED [None]
